FAERS Safety Report 4351384-4 (Version None)
Quarter: 2004Q2

REPORT INFORMATION
  Report Type: 
  Country: None (occurrence: None)
  Receive Date: 20040428
  Receipt Date: 20040414
  Transmission Date: 20050107
  Serious: Yes (Disabling, Other)
  Sender: FDA-Public Use
  Company Number: USA040464837

PATIENT
  Age: 79 Year
  Sex: Male
  Weight: 80 kg

DRUGS (3)
  1. HUMULIN N [Suspect]
  2. HUMULIN R [Suspect]
  3. HUMULIN 70/30 [Suspect]
     Dates: start: 19820101

REACTIONS (3)
  - BLINDNESS [None]
  - DIABETIC RETINOPATHY [None]
  - MACULAR DEGENERATION [None]
